FAERS Safety Report 5984301-1 (Version None)
Quarter: 2008Q4

REPORT INFORMATION
  Report Type: 
  Country: None (occurrence: None)
  Receive Date: 20081205
  Receipt Date: 20081205
  Transmission Date: 20090506
  Serious: Yes (Hospitalization)
  Sender: FDA-Public Use
  Company Number: None

PATIENT
  Sex: Male
  Weight: 70.6 kg

DRUGS (2)
  1. FLUOROURACIL [Suspect]
     Dosage: 3995 MG
  2. LEUCOVORIN CALCIUM [Suspect]
     Dosage: 190 MG

REACTIONS (3)
  - DIARRHOEA [None]
  - NAUSEA [None]
  - NEUTROPHIL COUNT DECREASED [None]
